FAERS Safety Report 6310700-4 (Version None)
Quarter: 2009Q3

REPORT INFORMATION
  Report Type: 
  Country: None (occurrence: None)
  Receive Date: 20090814
  Receipt Date: 20090805
  Transmission Date: 20100115
  Serious: Yes (Other)
  Sender: FDA-Public Use
  Company Number: FR-MERCK-0908FRA00008

PATIENT
  Age: 56 Year
  Sex: Female

DRUGS (5)
  1. PRIMAXIN [Suspect]
     Indication: PERICARDITIS
     Route: 041
     Dates: start: 20060603, end: 20060620
  2. VANCOMYCIN [Concomitant]
     Indication: PERICARDITIS
     Route: 065
     Dates: start: 20090603, end: 20090623
  3. LEVOTHYROXINE SODIUM [Concomitant]
     Indication: HYPOTHYROIDISM
     Route: 048
     Dates: start: 19940101
  4. ALFACALCIDOL [Concomitant]
     Route: 048
  5. CALCIUM (UNSPECIFIED) [Concomitant]
     Route: 048

REACTIONS (2)
  - LYMPHOPENIA [None]
  - NEUTROPENIA [None]
